FAERS Safety Report 9422179 (Version 1)
Quarter: 2013Q3

REPORT INFORMATION
  Report Type: Spontaneous
  Country: US (occurrence: US)
  Receive Date: 20130726
  Receipt Date: 20130726
  Transmission Date: 20140515
  Serious: Yes (Disabling)
  Sender: FDA-Public Use
  Company Number: PHEH2013US015602

PATIENT
  Age: 70 Year
  Sex: Male
  Weight: 107 kg

DRUGS (4)
  1. EXFORGE [Suspect]
     Indication: HYPERTENSION
     Dosage: 1 DF (320MG VALS/ 5MG AMLO), QD
     Route: 048
     Dates: start: 20120521, end: 20130705
  2. EXFORGE [Suspect]
     Dosage: UNK UKN, UNK
  3. MAXZIDE [Suspect]
     Indication: HYPERTENSION
     Dosage: 1 DF (25MG HYDR/ 37.5MG TRIA), QD
     Route: 048
     Dates: start: 20120518, end: 20130707
  4. MAXZIDE [Suspect]
     Dosage: UNK UKN, UNK

REACTIONS (2)
  - Polyneuropathy [Recovering/Resolving]
  - Hypercholesterolaemia [Unknown]
